FAERS Safety Report 7586522-3 (Version None)
Quarter: 2011Q3

REPORT INFORMATION
  Report Type: 
  Country: None (occurrence: None)
  Receive Date: 20110701
  Receipt Date: 20110620
  Transmission Date: 20111222
  Serious: Yes (Other)
  Sender: FDA-Public Use
  Company Number: TW-ROCHE-785244

PATIENT

DRUGS (1)
  1. PEGINTERFERON ALFA-2A [Suspect]
     Indication: HEPATITIS B
     Route: 065

REACTIONS (1)
  - HEPATITIS B [None]
